FAERS Safety Report 17383038 (Version 1)
Quarter: 2020Q1

REPORT INFORMATION
  Report Type: Spontaneous
  Country: US (occurrence: US)
  Receive Date: 20200206
  Receipt Date: 20200206
  Transmission Date: 20200409
  Serious: No
  Sender: FDA-Public Use
  Company Number: US-ABBVIE-19K-163-2976965-00

PATIENT
  Age: 55 Year
  Sex: Female
  Weight: 72.64 kg

DRUGS (3)
  1. HUMIRA [Suspect]
     Active Substance: ADALIMUMAB
     Indication: RHEUMATOID ARTHRITIS
     Route: 058
     Dates: start: 201808, end: 201902
  2. MELOXICAM. [Concomitant]
     Active Substance: MELOXICAM
     Indication: PRODUCT USED FOR UNKNOWN INDICATION
     Dates: start: 199905, end: 201807
  3. ENBREL [Suspect]
     Active Substance: ETANERCEPT
     Indication: PRODUCT USED FOR UNKNOWN INDICATION
     Route: 065
     Dates: start: 199905, end: 201807

REACTIONS (11)
  - Anxiety [Recovered/Resolved]
  - Paraesthesia [Unknown]
  - Libido decreased [Recovered/Resolved]
  - Hand deformity [Unknown]
  - Drug ineffective [Recovered/Resolved]
  - Vertigo [Unknown]
  - Blood cholesterol increased [Recovered/Resolved]
  - Peripheral swelling [Unknown]
  - Mycobacterial infection [Recovered/Resolved]
  - Mood altered [Recovered/Resolved]
  - Bone density abnormal [Unknown]

NARRATIVE: CASE EVENT DATE: 2019
